FAERS Safety Report 21486626 (Version 1)
Quarter: 2022Q4

REPORT INFORMATION
  Report Type: Spontaneous
  Country: US (occurrence: US)
  Receive Date: 20221020
  Receipt Date: 20221020
  Transmission Date: 20230113
  Serious: Yes (Other)
  Sender: FDA-Public Use
  Company Number: US-MYLANLABS-2022M1115280

PATIENT
  Age: 6 Decade
  Sex: Female

DRUGS (4)
  1. PREDNISONE [Suspect]
     Active Substance: PREDNISONE
     Indication: Glomerulonephritis minimal lesion
     Dosage: UNK, COURSE COMPLETED
     Route: 065
     Dates: end: 201810
  2. PREDNISONE [Suspect]
     Active Substance: PREDNISONE
     Dosage: UNK, TAPERED OFF OVER 3 MONTHS
     Route: 065
  3. TOZINAMERAN [Concomitant]
     Active Substance: TOZINAMERAN
     Indication: COVID-19 immunisation
     Dosage: UNK, FIRST DOSE OF TOZINAMERAN VACCINE
     Route: 065
     Dates: start: 202101
  4. TOZINAMERAN [Concomitant]
     Active Substance: TOZINAMERAN
     Dosage: UNK, SECOND DOSE OF THE TOZINAMERAN VACCINE 3 WEEKS FOLLOWING THE FIRST DOSE
     Route: 065

REACTIONS (3)
  - Rebound effect [Recovered/Resolved]
  - Rash vesicular [Unknown]
  - Cushingoid [Unknown]

NARRATIVE: CASE EVENT DATE: 20181001
